FAERS Safety Report 5429829-8 (Version None)
Quarter: 2007Q3

REPORT INFORMATION
  Report Type: 
  Country: None (occurrence: None)
  Receive Date: 20070829
  Receipt Date: 20070822
  Transmission Date: 20080115
  Serious: Yes (Other)
  Sender: FDA-Public Use
  Company Number: US-PFIZER INC-2007046987

PATIENT
  Sex: Female
  Weight: 72.6 kg

DRUGS (2)
  1. CELEBREX [Suspect]
     Dates: start: 20000101, end: 20000101
  2. ANTIHYPERTENSIVES [Concomitant]

REACTIONS (2)
  - AMNESIA [None]
  - TRANSIENT ISCHAEMIC ATTACK [None]
